FAERS Safety Report 11004962 (Version 1)
Quarter: 2015Q2

REPORT INFORMATION
  Report Type: Spontaneous
  Country: US (occurrence: US)
  Receive Date: 20150409
  Receipt Date: 20150409
  Transmission Date: 20150821
  Serious: Yes (Other)
  Sender: FDA-Public Use
  Company Number: US-SA-2015SA044148

PATIENT
  Age: 67 Year
  Sex: Female

DRUGS (9)
  1. SPRYCEL [Concomitant]
     Active Substance: DASATINIB
  2. VITAMIN C [Concomitant]
     Active Substance: ASCORBIC ACID
  3. LASIX [Concomitant]
     Active Substance: FUROSEMIDE
  4. NITROGLYCERINE [Concomitant]
     Active Substance: NITROGLYCERIN
  5. ASPIRIN. [Concomitant]
     Active Substance: ASPIRIN
     Dosage: STRENGTH:81 MG
  6. METOPROLOL [Concomitant]
     Active Substance: METOPROLOL
  7. PLAVIX [Suspect]
     Active Substance: CLOPIDOGREL BISULFATE
     Route: 065
  8. TORSEMIDE. [Concomitant]
     Active Substance: TORSEMIDE
  9. VITAMIN B12 [Concomitant]
     Active Substance: CYANOCOBALAMIN

REACTIONS (1)
  - Catheterisation cardiac [Unknown]

NARRATIVE: CASE EVENT DATE: 2015
